FAERS Safety Report 8976302 (Version 1)
Quarter: 2012Q4

REPORT INFORMATION
  Report Type: 
  Country: US (occurrence: US)
  Receive Date: 20121219
  Receipt Date: 20121219
  Transmission Date: 20130627
  Serious: No
  Sender: FDA-Public Use
  Company Number: US-AMGEN-USASP2012065217

PATIENT
  Age: 56 Year
  Sex: Female

DRUGS (7)
  1. PROLIA [Suspect]
     Indication: OSTEOPOROSIS POSTMENOPAUSAL
     Dosage: UNK
     Dates: start: 201201
  2. EFFEXOR [Concomitant]
     Indication: DEPRESSION
  3. XANAX [Concomitant]
     Indication: SLEEP DISORDER
  4. ZOLPIDEM [Concomitant]
     Indication: SLEEP DISORDER
  5. CALCIUM [Concomitant]
     Dosage: UNK
  6. VITAMIN D /00107901/ [Concomitant]
     Dosage: UNK
  7. VITAMINS                           /00067501/ [Concomitant]
     Dosage: UNK

REACTIONS (4)
  - Pain [Unknown]
  - Swelling [Unknown]
  - Skin warm [Unknown]
  - Pain in extremity [Unknown]
